FAERS Safety Report 6699287-4 (Version None)
Quarter: 2010Q2

REPORT INFORMATION
  Report Type: 
  Country: None (occurrence: None)
  Receive Date: 20100427
  Receipt Date: 20100415
  Transmission Date: 20101027
  Serious: Yes (Other)
  Sender: FDA-Public Use
  Company Number: RU-PFIZER INC-2010042262

PATIENT
  Age: 32 Year
  Sex: Female

DRUGS (3)
  1. DOSTINEX [Suspect]
     Indication: HYPERPROLACTINAEMIA
     Dosage: 0.5 MG, WEEKLY
     Route: 048
     Dates: start: 20091010
  2. DOSTINEX [Suspect]
     Dosage: 0.75 MG, WEEKLY
     Route: 048
     Dates: start: 20100110
  3. DOSTINEX [Suspect]
     Dosage: 0.5 MG, WEEKLY
     Route: 048

REACTIONS (4)
  - ADENOMA BENIGN [None]
  - AMENORRHOEA [None]
  - GALACTORRHOEA [None]
  - POOR QUALITY DRUG ADMINISTERED [None]
